FAERS Safety Report 23853375 (Version 1)
Quarter: 2024Q2

REPORT INFORMATION
  Report Type: Spontaneous
  Country: KR (occurrence: KR)
  Receive Date: 20240514
  Receipt Date: 20240514
  Transmission Date: 20240716
  Serious: Yes (Other)
  Sender: FDA-Public Use
  Company Number: KR-SUN PHARMACEUTICAL INDUSTRIES LTD-2024RR-445906

PATIENT
  Age: 67 Year
  Sex: Male

DRUGS (7)
  1. BACLOFEN [Suspect]
     Active Substance: BACLOFEN
     Indication: Hemiplegia
     Dosage: 10 MILLIGRAM, QID
     Route: 048
  2. BACLOFEN [Suspect]
     Active Substance: BACLOFEN
     Dosage: 50 MICROGRAM, DAILY
     Route: 037
  3. BACLOFEN [Suspect]
     Active Substance: BACLOFEN
     Dosage: 85 MICROGRAM, DAILY
     Route: 037
  4. BACLOFEN [Suspect]
     Active Substance: BACLOFEN
     Dosage: 75 MICROGRAM, DAILY
     Route: 037
  5. PREGABALIN [Suspect]
     Active Substance: PREGABALIN
     Indication: Hemiplegia
     Dosage: 75 MILLIGRAM, BID
     Route: 048
  6. TRIHEXYPHENIDYL [Suspect]
     Active Substance: TRIHEXYPHENIDYL
     Indication: Hemiplegia
     Dosage: 2 MILLIGRAM, BID
     Route: 048
  7. CLONAZEPAM [Suspect]
     Active Substance: CLONAZEPAM
     Indication: Hemiplegia
     Dosage: 0.5 MILLIGRAM, BID
     Route: 048

REACTIONS (2)
  - Muscular weakness [Unknown]
  - Drug ineffective [Unknown]
